FAERS Safety Report 9731983 (Version 4)
Quarter: 2014Q2

REPORT INFORMATION
  Report Type: Report from Study
  Country: CA (occurrence: CA)
  Receive Date: 20131205
  Receipt Date: 20140409
  Transmission Date: 20141212
  Serious: Yes (Other)
  Sender: FDA-Public Use
  Company Number: CA-JNJFOC-20130906049

PATIENT
  Age: 30 Year
  Sex: Male
  Weight: 99.79 kg

DRUGS (10)
  1. SIMPONI [Suspect]
     Indication: ANKYLOSING SPONDYLITIS
     Route: 058
     Dates: start: 201010
  2. SIMPONI [Suspect]
     Indication: ANKYLOSING SPONDYLITIS
     Route: 058
     Dates: start: 20140130
  3. SIMPONI [Suspect]
     Indication: ANKYLOSING SPONDYLITIS
     Route: 058
     Dates: start: 20130425
  4. MOBICOX [Concomitant]
     Route: 065
  5. AMITRIPTYLINE [Concomitant]
     Indication: PAIN
     Route: 065
     Dates: start: 2008
  6. CYMBALTA [Concomitant]
     Indication: PAIN
     Route: 065
     Dates: start: 201301
  7. OXYCODONE [Concomitant]
     Route: 065
     Dates: start: 2006
  8. OXYCODONE [Concomitant]
     Route: 065
  9. VITAMIN D [Concomitant]
     Route: 065
  10. FISH OIL [Concomitant]
     Route: 065

REACTIONS (2)
  - Dental caries [Not Recovered/Not Resolved]
  - Tooth loss [Unknown]
